FAERS Safety Report 17924323 (Version 5)
Quarter: 2020Q3

REPORT INFORMATION
  Report Type: Spontaneous
  Country: US (occurrence: US)
  Receive Date: 20200622
  Receipt Date: 20200820
  Transmission Date: 20201103
  Serious: Yes (Hospitalization, Other)
  Sender: FDA-Public Use
  Company Number: US-PFIZER INC-2020201782

PATIENT
  Age: 65 Year
  Sex: Female
  Weight: 74.39 kg

DRUGS (9)
  1. FLECTOR [Suspect]
     Active Substance: DICLOFENAC EPOLAMINE
     Indication: PAIN
  2. VOLTAREN [DICLOFENAC] [Concomitant]
     Active Substance: DICLOFENAC SODIUM
     Indication: ARTHRITIS
     Dosage: UNK
  3. FENTANYL. [Concomitant]
     Active Substance: FENTANYL
     Indication: PAIN
     Dosage: 75 UG (75MCG PATCH PLACED ON SHOULDER OR ARM FOR 72 HOURS, CHANGING THE PATCH EVERY 3 DAYS)
     Dates: start: 202005
  4. FLECTOR [Suspect]
     Active Substance: DICLOFENAC EPOLAMINE
     Indication: SCOLIOSIS
  5. FLECTOR [Suspect]
     Active Substance: DICLOFENAC EPOLAMINE
     Indication: STENOSIS
  6. FLECTOR [Suspect]
     Active Substance: DICLOFENAC EPOLAMINE
     Indication: ARTHRALGIA
  7. TYLENOL [Concomitant]
     Active Substance: ACETAMINOPHEN
     Dosage: 1000 MG, 3X/DAY
  8. FLECTOR [Suspect]
     Active Substance: DICLOFENAC EPOLAMINE
     Indication: INTERVERTEBRAL DISC DEGENERATION
  9. FLECTOR [Suspect]
     Active Substance: DICLOFENAC EPOLAMINE
     Indication: BACK PAIN
     Dosage: 2 DF, 1X/DAY
     Route: 062

REACTIONS (11)
  - Feeling abnormal [Not Recovered/Not Resolved]
  - Necrotising fasciitis [Unknown]
  - Off label use [Unknown]
  - Near death experience [Unknown]
  - Osteoarthritis [Unknown]
  - Product use issue [Unknown]
  - Drug effective for unapproved indication [Unknown]
  - Intentional product use issue [Unknown]
  - Gait inability [Recovering/Resolving]
  - Expired product administered [Unknown]
  - Weight decreased [Unknown]
